FAERS Safety Report 19427781 (Version 2)
Quarter: 2021Q3

REPORT INFORMATION
  Report Type: Report from Study
  Country: US (occurrence: US)
  Receive Date: 20210617
  Receipt Date: 20210714
  Transmission Date: 20211014
  Serious: Yes (Hospitalization, Other)
  Sender: FDA-Public Use
  Company Number: US-JNJFOC-20210548539

PATIENT
  Age: 41 Year
  Sex: Male
  Weight: 113.6 kg

DRUGS (4)
  1. SELEXIPAG [Suspect]
     Active Substance: SELEXIPAG
     Indication: PULMONARY ARTERIAL HYPERTENSION
     Dosage: UPTRAVI 1600 MCG ORALLY 2 TIMES DAILY
     Route: 048
  2. MACITENTAN [Suspect]
     Active Substance: MACITENTAN
     Indication: PULMONARY ARTERIAL HYPERTENSION
     Dosage: OPSUMIT 10MG ORALLY DAILY
     Route: 048
  3. SILDENAFIL CITRATE. [Concomitant]
     Active Substance: SILDENAFIL CITRATE
  4. TREPROSTINIL. [Concomitant]
     Active Substance: TREPROSTINIL

REACTIONS (8)
  - Pain in jaw [Unknown]
  - Muscle spasms [Unknown]
  - Therapy non-responder [Unknown]
  - Diarrhoea [Unknown]
  - Pulmonary arterial hypertension [Unknown]
  - Fluid retention [Recovering/Resolving]
  - Therapy change [Unknown]
  - Loss of consciousness [Recovering/Resolving]

NARRATIVE: CASE EVENT DATE: 20210519
